FAERS Safety Report 4543212-9 (Version None)
Quarter: 2005Q1

REPORT INFORMATION
  Report Type: 
  Country: None (occurrence: None)
  Receive Date: 20050103
  Receipt Date: 20041221
  Transmission Date: 20050727
  Serious: Yes (Disabling)
  Sender: FDA-Public Use
  Company Number: 200422337GDDC

PATIENT
  Age: 53 Year
  Sex: Male

DRUGS (11)
  1. METRONIDAZOLE [Suspect]
     Indication: CROHN'S DISEASE
     Route: 048
     Dates: start: 20000901, end: 20020201
  2. ALLOPURINOL [Concomitant]
     Dates: start: 19950301
  3. MESALAMINE [Concomitant]
  4. QUININE SULPHATE [Concomitant]
     Dates: start: 20010301
  5. LOPERAMIDE HYDROCHLORIDE [Concomitant]
  6. QUESTRAN [Concomitant]
  7. TRAMADOL HCL [Concomitant]
  8. BUDESONIDE [Concomitant]
  9. DISODIUM ETIDRONATE [Concomitant]
  10. CODEINE PHOSPHATE [Concomitant]
  11. REBOXETINE [Concomitant]
     Dates: start: 19980101, end: 20000904

REACTIONS (1)
  - NEUROPATHY PERIPHERAL [None]
